FAERS Safety Report 7021856-2 (Version None)
Quarter: 2010Q3

REPORT INFORMATION
  Report Type: 
  Country: None (occurrence: None)
  Receive Date: 20100930
  Receipt Date: 20100921
  Transmission Date: 20110219
  Serious: Yes (Hospitalization)
  Sender: FDA-Public Use
  Company Number: GB-TEVA-249756ISR

PATIENT
  Sex: Female

DRUGS (2)
  1. FLUDARABINE [Suspect]
     Indication: NEOPLASM MALIGNANT
     Dosage: 25 MG/M2/KG
     Route: 042
     Dates: start: 20080821
  2. PROLEUKIN [Suspect]
     Indication: NEOPLASM MALIGNANT
     Dosage: 6000000 IU/KQ; Q8HRS
     Dates: start: 20080826

REACTIONS (6)
  - ANURIA [None]
  - BACK PAIN [None]
  - CONSTIPATION [None]
  - DECREASED APPETITE [None]
  - SECRETION DISCHARGE [None]
  - VOMITING [None]
